FAERS Safety Report 5282524-0 (Version None)
Quarter: 2007Q1

REPORT INFORMATION
  Report Type: 
  Country: None (occurrence: None)
  Receive Date: 20070326
  Receipt Date: 20070316
  Transmission Date: 20070707
  Serious: Yes (Death)
  Sender: FDA-Public Use
  Company Number: 163-21880-07020506

PATIENT
  Age: 83 Year
  Sex: Male
  Weight: 70 kg

DRUGS (7)
  1. REVLIMID [Suspect]
     Indication: MULTIPLE MYELOMA
     Dosage: 25 MG, DAILY FOR 21 DAYS WITH 7 DAYS OFF, ORAL
     Route: 048
     Dates: start: 20070108, end: 20070101
  2. OXYCONTIN [Concomitant]
  3. LOPRESSOR [Concomitant]
  4. ALLOPURINOL [Concomitant]
  5. COLACE (DOCUSTATE SODIUM) [Concomitant]
  6. FOLATE (FOLIC ACID) [Concomitant]
  7. LASIX [Concomitant]

REACTIONS (5)
  - HYPERCALCAEMIA [None]
  - NEPHRITIS [None]
  - PNEUMONIA [None]
  - RENAL FAILURE [None]
  - WHITE BLOOD CELL COUNT DECREASED [None]
